FAERS Safety Report 23131454 (Version 6)
Quarter: 2024Q1

REPORT INFORMATION
  Report Type: Other
  Country: KR (occurrence: None)
  Receive Date: 20231031
  Receipt Date: 20240202
  Transmission Date: 20240410
  Serious: Yes (Death, Hospitalization)
  Sender: FDA-Public Use
  Company Number: KR-ROCHE-3446198

PATIENT
  Age: 54 Year
  Sex: Male
  Weight: 56.4 kg

DRUGS (52)
  1. BEVACIZUMAB [Suspect]
     Active Substance: BEVACIZUMAB
     Indication: Colorectal cancer metastatic
     Route: 042
     Dates: start: 20231013, end: 20231013
  2. ERLOTINIB [Suspect]
     Active Substance: ERLOTINIB
     Indication: Colorectal cancer metastatic
     Route: 048
     Dates: start: 20231013, end: 20231027
  3. MUCOBARRIER [Concomitant]
     Route: 048
     Dates: start: 20230404, end: 20231028
  4. DICLOMED GARGLE [Concomitant]
     Dates: start: 20230516, end: 20231028
  5. TARGIN PR [Concomitant]
     Dosage: 5/2.5MG
     Route: 048
     Dates: start: 20230919, end: 20231016
  6. DULACKHAN EASY [Concomitant]
     Route: 048
     Dates: start: 20231013, end: 20231113
  7. TRENTAL [Concomitant]
     Active Substance: PENTOXIFYLLINE
     Route: 048
     Dates: start: 20231023, end: 20231028
  8. TRENTAL [Concomitant]
     Active Substance: PENTOXIFYLLINE
     Route: 048
     Dates: start: 20231129, end: 20231205
  9. TRANEXAMIC ACID [Concomitant]
     Active Substance: TRANEXAMIC ACID
     Dosage: 2 AMPULE
     Route: 042
     Dates: start: 20231104, end: 20231104
  10. TRANEXAMIC ACID [Concomitant]
     Active Substance: TRANEXAMIC ACID
     Route: 042
     Dates: start: 20231104, end: 20231114
  11. TRANEXAMIC ACID [Concomitant]
     Active Substance: TRANEXAMIC ACID
     Route: 042
     Dates: start: 20231129, end: 20231129
  12. TRANEXAMIC ACID [Concomitant]
     Active Substance: TRANEXAMIC ACID
     Route: 042
     Dates: start: 20231207, end: 20231208
  13. OROPHEROL [Concomitant]
     Dosage: 3CAPSULE
     Route: 048
     Dates: start: 20231108, end: 20231208
  14. LANSOPRAZOLE [Concomitant]
     Active Substance: LANSOPRAZOLE
     Route: 048
     Dates: start: 20231108, end: 20231208
  15. VEMLIDY [Concomitant]
     Active Substance: TENOFOVIR ALAFENAMIDE FUMARATE
     Route: 048
     Dates: start: 20231108, end: 20231208
  16. VEMLIDY [Concomitant]
     Active Substance: TENOFOVIR ALAFENAMIDE FUMARATE
     Dates: end: 20231028
  17. SYNTHROID [Concomitant]
     Active Substance: LEVOTHYROXINE SODIUM
     Dosage: 125MCG
     Route: 048
     Dates: start: 20231108, end: 20231208
  18. SYNTHROID [Concomitant]
     Active Substance: LEVOTHYROXINE SODIUM
     Dates: end: 20231104
  19. EXFORGE [Concomitant]
     Active Substance: AMLODIPINE BESYLATE\VALSARTAN
     Dosage: 5/80MG
     Route: 048
     Dates: start: 20231108, end: 20231208
  20. RAMOSETRON HYDROCHLORIDE [Concomitant]
     Active Substance: RAMOSETRON HYDROCHLORIDE
     Route: 042
     Dates: start: 20231110, end: 20231110
  21. METOCLOPRAMIDE HYDROCHLORIDE [Concomitant]
     Active Substance: METOCLOPRAMIDE HYDROCHLORIDE
     Route: 042
     Dates: start: 20231110, end: 20231114
  22. CENTIREX ADVANCE [Concomitant]
     Route: 048
     Dates: start: 20231115, end: 20231208
  23. CEFDITOREN PIVOXIL [Concomitant]
     Active Substance: CEFDITOREN PIVOXIL
     Route: 048
     Dates: start: 20231129, end: 20231205
  24. NOLTEC [Concomitant]
     Route: 048
     Dates: start: 20231129, end: 20231205
  25. CYCIN [Concomitant]
     Route: 042
     Dates: start: 20231207, end: 20231208
  26. CALCIUM POLYSTYRENE SULFONATE [Concomitant]
     Active Substance: CALCIUM POLYSTYRENE SULFONATE
     Route: 054
     Dates: start: 20231207, end: 20231207
  27. MINOCIN [Concomitant]
     Active Substance: MINOCYCLINE HYDROCHLORIDE
     Dosage: 50MG 2CAPSULE
     Route: 048
     Dates: start: 20231013, end: 20231028
  28. FENTADUR [Concomitant]
     Dosage: 25 UG/H
     Route: 061
     Dates: start: 20231020, end: 20231106
  29. FENTADUR [Concomitant]
     Dosage: 50 UG/H
     Route: 061
     Dates: start: 20231107, end: 20231208
  30. FENTADUR [Concomitant]
     Dosage: 12 UG/H
     Route: 061
     Dates: start: 20231114, end: 20231206
  31. PELUBI CR [Concomitant]
     Route: 048
     Dates: start: 20231023, end: 20231028
  32. BACTACIN (SOUTH KOREA) [Concomitant]
     Dosage: 2 VIAL
     Route: 042
     Dates: start: 20231104, end: 20231106
  33. BACTACIN (SOUTH KOREA) [Concomitant]
     Dosage: 2 VIAL
     Route: 042
     Dates: start: 20231129, end: 20231129
  34. BACTACIN (SOUTH KOREA) [Concomitant]
     Dosage: 2 VIAL
     Route: 042
     Dates: start: 20231207, end: 20231208
  35. TRAMADOL HYDROCHLORIDE [Concomitant]
     Active Substance: TRAMADOL HYDROCHLORIDE
     Route: 042
     Dates: start: 20231104, end: 20231110
  36. MEPERIDINE HYDROCHLORIDE [Concomitant]
     Active Substance: MEPERIDINE HYDROCHLORIDE
     Route: 042
     Dates: start: 20231106, end: 20231113
  37. DICLOMED GARGLE [Concomitant]
     Dates: start: 20231107, end: 20231208
  38. CHLORHEXIDINE GLUCONATE [Concomitant]
     Active Substance: CHLORHEXIDINE GLUCONATE
     Dates: start: 20231107, end: 20231114
  39. CEFAZOLIN [Concomitant]
     Active Substance: CEFAZOLIN
     Dosage: 2 VIAL
     Route: 042
     Dates: start: 20231107, end: 20231107
  40. DILID [Concomitant]
     Route: 042
     Dates: start: 20231107, end: 20231114
  41. DILID [Concomitant]
     Route: 042
     Dates: start: 20231114, end: 20231114
  42. CEFTRIAXONE SODIUM [Concomitant]
     Active Substance: CEFTRIAXONE SODIUM
     Route: 042
     Dates: start: 20231108, end: 20231114
  43. FLAGYL [Concomitant]
     Active Substance: METRONIDAZOLE\METRONIDAZOLE HYDROCHLORIDE
     Route: 048
     Dates: start: 20231108, end: 20231115
  44. DEXAMETHASONE [Concomitant]
     Active Substance: DEXAMETHASONE
     Dosage: 2 T
     Route: 048
     Dates: start: 20231108, end: 20231206
  45. DEXKETOPROFEN TROMETAMOL [Concomitant]
     Active Substance: DEXKETOPROFEN TROMETAMOL
     Route: 042
     Dates: start: 20231110, end: 20231117
  46. PROPACETAMOL HYDROCHLORIDE [Concomitant]
     Active Substance: PROPACETAMOL HYDROCHLORIDE
     Route: 042
     Dates: start: 20231114, end: 20231117
  47. AMOCLAN DUO [Concomitant]
     Dosage: 2T
     Route: 048
     Dates: start: 20231115, end: 20231206
  48. FOTAGEL [Concomitant]
     Route: 048
     Dates: start: 20231116, end: 20231117
  49. MORPHINE SULFATE [Concomitant]
     Active Substance: MORPHINE SULFATE
     Route: 042
     Dates: start: 20231207, end: 20231208
  50. TRANEXAMIC ACID [Concomitant]
     Active Substance: TRANEXAMIC ACID
     Route: 042
     Dates: start: 20231129, end: 20231129
  51. TRANEXAMIC ACID [Concomitant]
     Active Substance: TRANEXAMIC ACID
     Route: 042
     Dates: start: 20231207, end: 20231208
  52. EXFORTE [Concomitant]
     Dates: end: 20231104

REACTIONS (2)
  - Haemorrhage [Fatal]
  - Nausea [Not Recovered/Not Resolved]

NARRATIVE: CASE EVENT DATE: 20231017
